FAERS Safety Report 10527451 (Version 1)
Quarter: 2014Q4

REPORT INFORMATION
  Report Type: Spontaneous
  Country: US (occurrence: None)
  Receive Date: 20141016
  Receipt Date: 20141016
  Transmission Date: 20150528
  Serious: No
  Sender: FDA-Public Use
  Company Number: None

PATIENT
  Age: 54 Year
  Sex: Female
  Weight: 59.88 kg

DRUGS (1)
  1. BUPROPION HCL 100 MG WATSON [Suspect]
     Active Substance: BUPROPION HYDROCHLORIDE
     Dosage: 1 PILL

REACTIONS (3)
  - Adverse reaction [None]
  - Product substitution issue [None]
  - Product quality issue [None]

NARRATIVE: CASE EVENT DATE: 20140913
